FAERS Safety Report 6396201-6 (Version None)
Quarter: 2009Q4

REPORT INFORMATION
  Report Type: 
  Country: None (occurrence: None)
  Receive Date: 20091011
  Receipt Date: 20091001
  Transmission Date: 20100525
  Serious: Yes (Other)
  Sender: FDA-Public Use
  Company Number: PHHY2009BR42314

PATIENT
  Sex: Female

DRUGS (2)
  1. FORASEQ [Suspect]
     Indication: ASTHMA
     Dosage: 1 DF, Q12H, INHALATION OF 1 CAPSULE OF EACH SUBSTANCE
  2. FORASEQ [Suspect]
     Dosage: 1 DF (TREATMENT 1 AND 2 EACH), ONCE/SINGLE, INGESTED 2 CAPSULES
     Route: 048

REACTIONS (4)
  - HAEMATEMESIS [None]
  - HAEMOPTYSIS [None]
  - INCORRECT ROUTE OF DRUG ADMINISTRATION [None]
  - MALAISE [None]
